FAERS Safety Report 6340646-7 (Version None)
Quarter: 2009Q3

REPORT INFORMATION
  Report Type: 
  Country: None (occurrence: None)
  Receive Date: 20090904
  Receipt Date: 20090826
  Transmission Date: 20100115
  Serious: Yes (Hospitalization)
  Sender: FDA-Public Use
  Company Number: US-B.I. PHARMACEUTICALS,INC./RIDGEFIELD-2009-BP-06999BP

PATIENT
  Age: 74 Year
  Sex: Male
  Weight: 56.7 kg

DRUGS (9)
  1. MIRAPEX [Suspect]
     Indication: PARKINSON'S DISEASE
     Dosage: 0.125 MG
     Dates: end: 20090604
  2. MIRAPEX [Suspect]
     Indication: RESTLESS LEGS SYNDROME
  3. AZILECT [Concomitant]
     Dosage: 0.5 MG
  4. ASPIRIN [Concomitant]
     Dosage: 325 MG
  5. PRILOSEC [Concomitant]
     Dosage: 20 MG
  6. BENICAR [Concomitant]
     Dosage: 40 MG
  7. ZETIA [Concomitant]
     Dosage: 10 MG
  8. KLONOPIN [Concomitant]
     Dosage: 0.5 MG
  9. HYDROCHLOROTHIAZIDE [Concomitant]

REACTIONS (7)
  - AFFECT LABILITY [None]
  - GRAND MAL CONVULSION [None]
  - HYPONATRAEMIA [None]
  - INSOMNIA [None]
  - MANIA [None]
  - POLYDIPSIA [None]
  - PSYCHOMOTOR HYPERACTIVITY [None]
